FAERS Safety Report 7605648-9 (Version None)
Quarter: 2011Q3

REPORT INFORMATION
  Report Type: 
  Country: None (occurrence: None)
  Receive Date: 20110705
  Receipt Date: 20110625
  Transmission Date: 20111222
  Serious: Yes (Life-Threatening, Hospitalization, Other)
  Sender: FDA-Public Use
  Company Number: CL-318-2011

PATIENT
  Age: 80 Year
  Sex: Female

DRUGS (1)
  1. CIPROFLOXACIN [Suspect]
     Indication: PROPHYLAXIS
     Dosage: 500MG ONCE INTRAVENOUS ONCE
     Route: 042

REACTIONS (6)
  - KOUNIS SYNDROME [None]
  - ELECTROCARDIOGRAM ST SEGMENT ELEVATION [None]
  - BLOOD IMMUNOGLOBULIN E INCREASED [None]
  - ATRIOVENTRICULAR BLOCK [None]
  - ANAPHYLACTIC REACTION [None]
  - RASH ERYTHEMATOUS [None]
